FAERS Safety Report 23560614 (Version 3)
Quarter: 2024Q2

REPORT INFORMATION
  Report Type: Spontaneous
  Country: US (occurrence: US)
  Receive Date: 20240223
  Receipt Date: 20240621
  Transmission Date: 20240716
  Serious: No
  Sender: FDA-Public Use
  Company Number: US-BRISTOL-MYERS SQUIBB COMPANY-2024-029588

PATIENT
  Age: 77 Year
  Sex: Female
  Weight: 66.22 kg

DRUGS (1)
  1. REVLIMID [Suspect]
     Active Substance: LENALIDOMIDE
     Indication: Plasma cell myeloma
     Route: 048
     Dates: start: 20230501

REACTIONS (13)
  - Influenza [Unknown]
  - Nausea [Unknown]
  - Decreased appetite [Unknown]
  - Muscle spasms [Unknown]
  - Tremor [Unknown]
  - Peripheral swelling [Unknown]
  - Skin discolouration [Unknown]
  - Fall [Unknown]
  - Limb injury [Unknown]
  - Screaming [Unknown]
  - Insomnia [Unknown]
  - Nervousness [Unknown]
  - Micturition disorder [Unknown]
